FAERS Safety Report 8483113-7 (Version None)
Quarter: 2012Q3

REPORT INFORMATION
  Report Type: 
  Country: None (occurrence: None)
  Receive Date: 20120702
  Receipt Date: 20120618
  Transmission Date: 20120928
  Serious: No
  Sender: FDA-Public Use
  Company Number: US-ASTRAZENECA-2012SE40847

PATIENT
  Age: 78 Year
  Sex: Male
  Weight: 104.3 kg

DRUGS (9)
  1. ANTI ITCH GEL [Concomitant]
  2. OMEPRAZOLE [Suspect]
     Route: 048
  3. CRESTOR [Suspect]
     Indication: BLOOD CHOLESTEROL ABNORMAL
     Route: 048
  4. ASPIRIN [Concomitant]
  5. METOPROLOL SUCCINATE [Suspect]
     Route: 048
  6. HYDROCHLOROTHIAZIDE [Concomitant]
  7. POTASSIUM CITRATE CRYSTALS [Concomitant]
  8. AMLODIPINE BESYLATE AND BENAZEPRIL HCL [Concomitant]
  9. ALLOPURINOL [Concomitant]

REACTIONS (3)
  - SNEEZING [None]
  - PRURITUS [None]
  - RASH [None]
